FAERS Safety Report 11788911 (Version 1)
Quarter: 2015Q4

REPORT INFORMATION
  Report Type: Spontaneous
  Country: GB (occurrence: GB)
  Receive Date: 20151201
  Receipt Date: 20151201
  Transmission Date: 20160305
  Serious: Yes (Disabling, Other)
  Sender: FDA-Public Use
  Company Number: GB-WATSON-2015-18368

PATIENT
  Age: 71 Year
  Sex: Female
  Weight: 68.94 kg

DRUGS (1)
  1. PREDNISOLONE (UNKNOWN) [Suspect]
     Active Substance: PREDNISOLONE
     Indication: DERMATITIS ALLERGIC
     Dosage: UNK (30MG PER DAY IN SINGLE DOSE FOR 14 DAYS/ REDUCING TO 20 MG/ 10 MG/ 5MG/ ZERO)
     Route: 048
     Dates: start: 20141116, end: 20141224

REACTIONS (2)
  - Fat tissue increased [Not Recovered/Not Resolved]
  - Pain [Not Recovered/Not Resolved]

NARRATIVE: CASE EVENT DATE: 20150401
